FAERS Safety Report 5658765-7 (Version None)
Quarter: 2008Q1

REPORT INFORMATION
  Report Type: 
  Country: None (occurrence: None)
  Receive Date: 20080310
  Receipt Date: 20070416
  Transmission Date: 20080703
  Serious: No
  Sender: FDA-Public Use
  Company Number: US-BAYER-200711141BCC

PATIENT
  Age: 71 Year
  Sex: Female
  Weight: 66 kg

DRUGS (5)
  1. ALEVE [Suspect]
     Indication: MUSCULOSKELETAL PAIN
     Route: 048
     Dates: start: 20070401
  2. LIPITOR [Concomitant]
  3. LOTREL [Concomitant]
  4. EQUATE 81 MG ASPIRIN [Concomitant]
  5. EQUATE MULTIVITAMINS [Concomitant]

REACTIONS (1)
  - CONSTIPATION [None]
